FAERS Safety Report 11290703 (Version 1)
Quarter: 2015Q3

REPORT INFORMATION
  Report Type: Spontaneous
  Country: US (occurrence: US)
  Receive Date: 20150722
  Receipt Date: 20150722
  Transmission Date: 20151125
  Serious: Yes (Hospitalization)
  Sender: FDA-Public Use
  Company Number: US-UNITED THERAPEUTICS-UNT-2015-000037

PATIENT
  Age: 71 Year
  Sex: Female
  Weight: 58.5 kg

DRUGS (3)
  1. ADCIRCA [Concomitant]
     Active Substance: TADALAFIL
     Indication: PRODUCT USED FOR UNKNOWN INDICATION
  2. REMODULIN [Suspect]
     Active Substance: TREPROSTINIL
     Indication: PULMONARY HYPERTENSION
     Dosage: 0.0305 ?G/KG, CONTINUING
     Route: 058
     Dates: start: 20141013
  3. REMODULIN [Suspect]
     Active Substance: TREPROSTINIL
     Dosage: 0.021 ?G/KG, CONTINUING

REACTIONS (8)
  - Headache [Unknown]
  - Oedema [Unknown]
  - Abdominal pain [Unknown]
  - Flatulence [Unknown]
  - Pulmonary arterial hypertension [Unknown]
  - Diarrhoea [Unknown]
  - Mucous stools [Unknown]
  - Dyspnoea exertional [Not Recovered/Not Resolved]

NARRATIVE: CASE EVENT DATE: 201412
